FAERS Safety Report 14561698 (Version 1)
Quarter: 2018Q1

REPORT INFORMATION
  Report Type: Spontaneous
  Country: US (occurrence: US)
  Receive Date: 20180222
  Receipt Date: 20180222
  Transmission Date: 20180509
  Serious: No
  Sender: FDA-Public Use
  Company Number: US-ELI_LILLY_AND_COMPANY-US201802006465

PATIENT
  Age: 57 Year
  Sex: Female

DRUGS (3)
  1. TRULICITY [Suspect]
     Active Substance: DULAGLUTIDE
     Indication: PRODUCT USED FOR UNKNOWN INDICATION
     Dosage: 0.75 MG, UNKNOWN
     Route: 065
     Dates: start: 201711
  2. TRULICITY [Suspect]
     Active Substance: DULAGLUTIDE
     Dosage: 1.5 MG, UNKNOWN
     Route: 065
  3. TRULICITY [Suspect]
     Active Substance: DULAGLUTIDE
     Dosage: 1.5 MG, UNKNOWN
     Route: 065

REACTIONS (9)
  - Eructation [Recovered/Resolved]
  - Abdominal pain upper [Unknown]
  - Blood glucose increased [Unknown]
  - Vomiting [Recovered/Resolved]
  - Malaise [Unknown]
  - Vomiting [Unknown]
  - Dysgeusia [Recovered/Resolved]
  - Diarrhoea [Unknown]
  - Eructation [Unknown]

NARRATIVE: CASE EVENT DATE: 20180209
